FAERS Safety Report 9882033 (Version 1)
Quarter: 2014Q1

REPORT INFORMATION
  Report Type: Spontaneous
  Country: US (occurrence: None)
  Receive Date: 20140205
  Receipt Date: 20140205
  Transmission Date: 20141002
  Serious: Yes (Other)
  Sender: FDA-Public Use
  Company Number: OPCR20140038

PATIENT
  Age: 52 Year
  Sex: Male
  Weight: 136.08 kg

DRUGS (3)
  1. OPANA ER [Suspect]
     Indication: BACK PAIN
     Dosage: 80 MG, 2 IN 1 D, ORAL
     Route: 048
     Dates: start: 2012, end: 2013
  2. OPANA [Suspect]
     Indication: BREAKTHROUGH PAIN
     Dosage: 30 MG, 3 IN 1 D, ORAL
     Route: 048
     Dates: end: 2013
  3. OPANA ER 40MG (OPANA ER 40 MG) (OXYMORPHONE HYDROCHLORIDE) (40 MILLIGRAM, TABLETS) (OXYMORPHONE HYDROCHLORIDE) [Concomitant]

REACTIONS (8)
  - Weight increased [None]
  - Insomnia [None]
  - Dysphagia [None]
  - Fatigue [None]
  - Skin disorder [None]
  - Skin irritation [None]
  - Drug withdrawal syndrome [None]
  - Pruritus generalised [None]
